FAERS Safety Report 7607422-6 (Version None)
Quarter: 2011Q3

REPORT INFORMATION
  Report Type: 
  Country: None (occurrence: None)
  Receive Date: 20110713
  Receipt Date: 20110711
  Transmission Date: 20111222
  Serious: Yes (Other)
  Sender: FDA-Public Use
  Company Number: US-BRISTOL-MYERS SQUIBB COMPANY-15895675

PATIENT
  Sex: Male

DRUGS (2)
  1. ZOLOFT [Suspect]
  2. ABILIFY [Suspect]
     Indication: DEPRESSION
     Route: 048

REACTIONS (1)
  - LOSS OF CONSCIOUSNESS [None]
